FAERS Safety Report 6477720-0 (Version None)
Quarter: 2009Q4

REPORT INFORMATION
  Report Type: 
  Country: None (occurrence: None)
  Receive Date: 20091203
  Receipt Date: 20091203
  Transmission Date: 20100525
  Serious: Yes (Hospitalization)
  Sender: FDA-Public Use
  Company Number: None

PATIENT
  Age: 47 Year
  Sex: Male
  Weight: 95.2554 kg

DRUGS (1)
  1. LEVAQUIN [Suspect]

REACTIONS (1)
  - TENDONITIS [None]
